FAERS Safety Report 4820284-5 (Version None)
Quarter: 2005Q4

REPORT INFORMATION
  Report Type: 
  Country: None (occurrence: None)
  Receive Date: 20051104
  Receipt Date: 20051031
  Transmission Date: 20060501
  Serious: Yes (Hospitalization)
  Sender: FDA-Public Use
  Company Number: JP-BOEHRINGER INGELHEIM PHARMACEUTICALS, INC.-2005-BP-19114NB

PATIENT
  Sex: Female

DRUGS (6)
  1. MOBIC [Suspect]
     Indication: RHEUMATOID ARTHRITIS
     Route: 048
     Dates: start: 20031209, end: 20040224
  2. RHEUMATREX [Concomitant]
     Indication: RHEUMATOID ARTHRITIS
     Route: 048
     Dates: start: 20030212, end: 20040224
  3. MEDROL [Concomitant]
     Indication: RHEUMATOID ARTHRITIS
     Route: 048
     Dates: start: 20030312, end: 20040224
  4. BONALON (ALENDRONATE SODIUM HYDRATE) [Concomitant]
     Indication: OSTEOPOROSIS
     Route: 048
     Dates: start: 20030507, end: 20040224
  5. DIOVAN [Concomitant]
     Indication: HYPERTENSION
     Route: 048
     Dates: start: 20030115, end: 20040224
  6. GASTER D [Concomitant]
     Route: 048
     Dates: start: 20030507

REACTIONS (2)
  - HERPES ZOSTER [None]
  - PANCYTOPENIA [None]
